FAERS Safety Report 16612803 (Version 1)
Quarter: 2019Q3

REPORT INFORMATION
  Report Type: Spontaneous
  Country: BE (occurrence: BE)
  Receive Date: 20190607
  Receipt Date: 20190607
  Transmission Date: 20191004
  Serious: Yes (Hospitalization)
  Sender: FDA-Public Use
  Company Number: None

PATIENT
  Age: 46 Year
  Sex: Male
  Weight: 106 kg

DRUGS (4)
  1. CISPLATIN. [Suspect]
     Active Substance: CISPLATIN
     Dates: end: 20190524
  2. TAXOL [Suspect]
     Active Substance: PACLITAXEL
     Dates: end: 20190520
  3. FILGRASTIM [Concomitant]
     Active Substance: FILGRASTIM
  4. IFOSFAMIDE. [Suspect]
     Active Substance: IFOSFAMIDE
     Dates: end: 20190524

REACTIONS (3)
  - Febrile neutropenia [None]
  - Tachycardia [None]
  - Campylobacter test positive [None]

NARRATIVE: CASE EVENT DATE: 20190529
